FAERS Safety Report 9617919 (Version 1)
Quarter: 2013Q4

REPORT INFORMATION
  Report Type: Spontaneous
  Country: CH (occurrence: CH)
  Receive Date: 20131011
  Receipt Date: 20131011
  Transmission Date: 20140711
  Serious: Yes (Hospitalization, Other)
  Sender: FDA-Public Use
  Company Number: CH-ABBVIE-13P-151-1155877-00

PATIENT
  Age: 77 Year
  Sex: Female

DRUGS (2)
  1. HUMIRA [Suspect]
     Indication: CROHN^S DISEASE
     Route: 058
     Dates: start: 201110, end: 201306
  2. DAFALGAN [Concomitant]
     Indication: PRODUCT USED FOR UNKNOWN INDICATION
     Dosage: 1-0-1
     Route: 048

REACTIONS (12)
  - Chills [Recovered/Resolved]
  - Disseminated tuberculosis [Recovering/Resolving]
  - Pyrexia [Recovered/Resolved]
  - Cough [Unknown]
  - Sputum abnormal [Unknown]
  - Granuloma [Unknown]
  - Lymphadenopathy [Unknown]
  - General physical health deterioration [Recovered/Resolved]
  - Cachexia [Unknown]
  - Pyrexia [Unknown]
  - Metastases to pancreas [Unknown]
  - Metastases to adrenals [Unknown]
